FAERS Safety Report 5630082-0 (Version None)
Quarter: 2008Q1

REPORT INFORMATION
  Report Type: 
  Country: None (occurrence: None)
  Receive Date: 20080218
  Receipt Date: 20080212
  Transmission Date: 20080703
  Serious: Yes (Hospitalization)
  Sender: FDA-Public Use
  Company Number: PHEH2008US01139

PATIENT
  Age: 79 Year
  Sex: Male

DRUGS (1)
  1. TEKTURNA [Suspect]
     Dosage: UNK, UNK

REACTIONS (7)
  - ABDOMINAL PAIN LOWER [None]
  - BLOOD CREATININE INCREASED [None]
  - CATHETER PLACEMENT [None]
  - COMPUTERISED TOMOGRAM ABNORMAL [None]
  - DIALYSIS [None]
  - RENAL DISORDER [None]
  - RENAL FAILURE ACUTE [None]
